FAERS Safety Report 5266352-8 (Version None)
Quarter: 2007Q1

REPORT INFORMATION
  Report Type: 
  Country: None (occurrence: None)
  Receive Date: 20070315
  Receipt Date: 20070306
  Transmission Date: 20070707
  Serious: Yes (Disabling)
  Sender: FDA-Public Use
  Company Number: US-SANOFI-SYNTHELABO-A03200701836

PATIENT
  Sex: Male

DRUGS (3)
  1. NEXIUM [Concomitant]
     Dosage: UNK
     Route: 048
  2. CELEXA [Concomitant]
     Dosage: UNK
     Route: 048
  3. AMBIEN [Suspect]
     Indication: INSOMNIA
     Route: 048
     Dates: start: 20050101, end: 20060623

REACTIONS (6)
  - AMNESIA [None]
  - ECCHYMOSIS [None]
  - JOINT SPRAIN [None]
  - MUSCULOSKELETAL CHEST PAIN [None]
  - ROAD TRAFFIC ACCIDENT [None]
  - SLEEP WALKING [None]
